FAERS Safety Report 25513602 (Version 1)
Quarter: 2025Q3

REPORT INFORMATION
  Report Type: Spontaneous
  Country: US (occurrence: US)
  Receive Date: 20250703
  Receipt Date: 20250703
  Transmission Date: 20251021
  Serious: No
  Sender: RADIUS PHARM
  Company Number: US-RADIUS HEALTH INC.-2024US009291

PATIENT
  Sex: Female

DRUGS (6)
  1. TYMLOS [Suspect]
     Active Substance: ABALOPARATIDE
     Indication: Product used for unknown indication
     Route: 058
     Dates: start: 20240402
  2. DICLOFENAC OPHTHALMIC [Concomitant]
     Active Substance: DICLOFENAC SODIUM
  3. LOTEPREDNOL [Concomitant]
     Active Substance: LOTEPREDNOL
  4. OXYBUTYNIN [Concomitant]
     Active Substance: OXYBUTYNIN
  5. PREDNISOLONE ACETATE [PREDNISONE ACETATE] [Concomitant]
  6. RESTASIS [Concomitant]
     Active Substance: CYCLOSPORINE

REACTIONS (2)
  - Hip fracture [Not Recovered/Not Resolved]
  - Loss of personal independence in daily activities [Not Recovered/Not Resolved]
